FAERS Safety Report 23445827 (Version 3)
Quarter: 2024Q1

REPORT INFORMATION
  Report Type: Spontaneous
  Country: IE (occurrence: IE)
  Receive Date: 20240126
  Receipt Date: 20240321
  Transmission Date: 20240410
  Serious: Yes (Other)
  Sender: FDA-Public Use
  Company Number: IE-BIOVITRUM-2024-IE-001290

PATIENT
  Age: 25 Year
  Sex: Male

DRUGS (2)
  1. EMAPALUMAB [Suspect]
     Active Substance: EMAPALUMAB
     Indication: Haemophagocytic lymphohistiocytosis
  2. EMAPALUMAB [Suspect]
     Active Substance: EMAPALUMAB
     Dosage: TWICE A WEEK (EVERY 3 DAYS)
     Dates: start: 202401

REACTIONS (3)
  - Urosepsis [Unknown]
  - Condition aggravated [Unknown]
  - Lower respiratory tract infection [Unknown]
